FAERS Safety Report 5173251-9 (Version None)
Quarter: 2006Q4

REPORT INFORMATION
  Report Type: 
  Country: None (occurrence: None)
  Receive Date: 20061214
  Receipt Date: 20061207
  Transmission Date: 20070319
  Serious: Yes (Other)
  Sender: FDA-Public Use
  Company Number: BR-BRISTOL-MYERS SQUIBB COMPANY-13606348

PATIENT
  Age: 63 Year
  Sex: Male

DRUGS (2)
  1. ENTECAVIR [Suspect]
     Indication: HEPATITIS B
     Route: 048
     Dates: start: 20040524
  2. GLYBURIDE [Concomitant]
     Dates: start: 20060724

REACTIONS (1)
  - HEPATIC NEOPLASM MALIGNANT [None]
